FAERS Safety Report 10791489 (Version 1)
Quarter: 2015Q1

REPORT INFORMATION
  Report Type: Spontaneous
  Country: US (occurrence: US)
  Receive Date: 20150213
  Receipt Date: 20150213
  Transmission Date: 20150721
  Serious: No
  Sender: FDA-Public Use
  Company Number: US-GLAXOSMITHKLINE-A1069023A

PATIENT

DRUGS (4)
  1. NICORETTE [Suspect]
     Active Substance: NICOTINE
  2. EQUATE NICOTINE [Suspect]
     Active Substance: NICOTINE
  3. TARGET NICOTINE [Suspect]
     Active Substance: NICOTINE
  4. NICODERM CQ [Suspect]
     Active Substance: NICOTINE

REACTIONS (3)
  - Tooth loss [Unknown]
  - Nightmare [Unknown]
  - Malaise [Unknown]
